FAERS Safety Report 23923727 (Version 1)
Quarter: 2024Q2

REPORT INFORMATION
  Report Type: Spontaneous
  Country: IT (occurrence: IT)
  Receive Date: 20240531
  Receipt Date: 20240531
  Transmission Date: 20240716
  Serious: Yes (Hospitalization, Other)
  Sender: FDA-Public Use
  Company Number: IT-SUN PHARMACEUTICAL INDUSTRIES LTD-2024R1-447158

PATIENT
  Age: 15 Year
  Sex: Female

DRUGS (1)
  1. FERROUS SULFATE [Suspect]
     Active Substance: FERROUS SULFATE
     Indication: Product used for unknown indication
     Dosage: 3297 MILLIGRAM
     Route: 048

REACTIONS (6)
  - Abdominal pain upper [Recovered/Resolved]
  - Discoloured vomit [Recovered/Resolved]
  - Gastrointestinal disorder [Recovered/Resolved]
  - Intentional overdose [Unknown]
  - Suicide attempt [Unknown]
  - Toxicity to various agents [Unknown]
